FAERS Safety Report 13463043 (Version 1)
Quarter: 2017Q2

REPORT INFORMATION
  Report Type: Spontaneous
  Country: US (occurrence: US)
  Receive Date: 20170420
  Receipt Date: 20170420
  Transmission Date: 20170830
  Serious: No
  Sender: FDA-Public Use
  Company Number: US-BAYER-2017-075878

PATIENT
  Sex: Male

DRUGS (1)
  1. GADAVIST [Suspect]
     Active Substance: GADOBUTROL
     Indication: PANCREATITIS
     Dosage: 10 ML, ONCE
     Dates: start: 20170405

REACTIONS (3)
  - Urticaria [None]
  - Pruritus [None]
  - Erythema [None]
